FAERS Safety Report 10915870 (Version 4)
Quarter: 2015Q2

REPORT INFORMATION
  Report Type: Spontaneous
  Country: GB (occurrence: GB)
  Receive Date: 20150316
  Receipt Date: 20150505
  Transmission Date: 20150821
  Serious: Yes (Other)
  Sender: FDA-Public Use
  Company Number: GB-TEVA-546317ACC

PATIENT
  Age: 22 Year
  Sex: Male
  Weight: 55 kg

DRUGS (4)
  1. EPILIM [Suspect]
     Active Substance: VALPROATE SODIUM
     Indication: EPILEPSY
     Dosage: DOSE INCREASED
     Route: 048
  2. LACTULOSE. [Suspect]
     Active Substance: LACTULOSE
     Indication: BOWEL MOVEMENT IRREGULARITY
     Route: 048
  3. FYBOGEL [Suspect]
     Active Substance: PLANTAGO OVATA SEED
     Indication: BOWEL MOVEMENT IRREGULARITY
     Dosage: .5 DOSAGE FORMS DAILY; ONE SACHET EVERY OTHER DAY
     Route: 048
  4. EPILIM [Suspect]
     Active Substance: VALPROATE SODIUM
     Indication: EPILEPSY
     Dosage: 35 ML DAILY;
     Route: 048
     Dates: start: 201411

REACTIONS (2)
  - Seizure [Unknown]
  - Drug ineffective [Unknown]

NARRATIVE: CASE EVENT DATE: 201411
